FAERS Safety Report 9360742 (Version 1)
Quarter: 2013Q2

REPORT INFORMATION
  Report Type: Spontaneous
  Country: US (occurrence: US)
  Receive Date: 20130621
  Receipt Date: 20130621
  Transmission Date: 20140414
  Serious: No
  Sender: FDA-Public Use
  Company Number: US-BAYER-2013-069353

PATIENT
  Age: 66 Year
  Sex: Male

DRUGS (21)
  1. ALEVE CAPLET [Suspect]
  2. BAYER ASPIRIN REGIMEN ADULT LOW STRENGTH [Suspect]
     Dosage: 1 DF, QD
  3. ADVAIR [Concomitant]
     Dosage: UNK UNK, BID
  4. SPIRIVA HANDIHALER [Concomitant]
     Dosage: UNK UNK, QD
  5. VENTOLIN [Concomitant]
     Dosage: UNK UNK, PRN
  6. CREON [PANCREATIN] [Concomitant]
     Dosage: 1 DF, TID
  7. POTASSIUM [Concomitant]
     Dosage: 1 DF, QD
  8. AMITRIPTYLINE [Concomitant]
     Dosage: 6 DF, HS
  9. HYDROCHLOROTHIAZIDE [Concomitant]
     Dosage: 1 DF, BID
  10. LISINOPRIL [Concomitant]
     Dosage: 1 DF, QD
  11. PRANDIN [Concomitant]
     Dosage: 1 MG, 1-15 MIN BEFORE EACH MEAL
  12. PLAVIX [Concomitant]
     Dosage: 1 DF, QD
  13. PROTONIX [Concomitant]
     Dosage: 1 DF, QD
  14. TOPIRAMATE [Concomitant]
     Dosage: 4 DF, QD
  15. CATAPRES [Concomitant]
     Indication: BLOOD PRESSURE ABNORMAL
     Dosage: UNK UNK, PRN
  16. NITROSTAT [Concomitant]
     Dosage: 1 DF, PRN
  17. BYSTOLIC [Concomitant]
     Dosage: 1 DF, HS
  18. TRAZODONE [Concomitant]
     Dosage: 2 DF, HS
  19. PERCOCET [Concomitant]
     Dosage: 1 DF, EVERY 8 HOUR AS NEEDED
  20. PAMERGAN [PETHIDINE HYDROCHLORIDE,PROMETHAZINE] [Concomitant]
     Indication: NAUSEA
     Dosage: 1 DF, EVERY 6 HRS AS NEEDED
  21. LEVEMIR [Concomitant]
     Dosage: 35 U, EVERY MORNING

REACTIONS (2)
  - Drug hypersensitivity [None]
  - Rash [None]
